FAERS Safety Report 4463094-3 (Version None)
Quarter: 2004Q3

REPORT INFORMATION
  Report Type: 
  Country: None (occurrence: None)
  Receive Date: 20040930
  Receipt Date: 20040604
  Transmission Date: 20050211
  Serious: Yes (Hospitalization, Other)
  Sender: FDA-Public Use
  Company Number: JP-ABBOTT-04P-087-0262925-00

PATIENT
  Sex: Female

DRUGS (7)
  1. LIPANTIL [Suspect]
     Indication: HYPERLIPIDAEMIA
     Route: 048
     Dates: start: 20040414, end: 20040526
  2. BLOPRESS TABLETS [Suspect]
     Indication: HYPERTENSION
     Route: 048
     Dates: start: 20040313, end: 20040526
  3. METFORMIN HCL [Suspect]
     Indication: DIABETES MELLITUS
     Route: 048
     Dates: start: 20040414, end: 20040526
  4. GARLIC + CAPSAICIN [Suspect]
     Indication: OBESITY
     Route: 048
     Dates: start: 20040517, end: 20040520
  5. INSULIN HUMAN [Concomitant]
     Indication: DIABETES MELLITUS
     Dosage: 24 UNITS IN AM/ 10 UNITS IN PM
     Route: 058
     Dates: end: 20040422
  6. INSULIN ASPART [Concomitant]
     Indication: DIABETES MELLITUS
     Dosage: 24 UNITS IN AM/ 10 UNITS IN PM
     Route: 058
     Dates: start: 20040423
  7. CEFCAPENE PIVOXIL HYDROCHLORIDE [Concomitant]
     Indication: INFECTION PROPHYLAXIS
     Route: 048
     Dates: start: 20040427, end: 20040501

REACTIONS (12)
  - ALANINE AMINOTRANSFERASE INCREASED [None]
  - ASPARTATE AMINOTRANSFERASE INCREASED [None]
  - BLOOD ALKALINE PHOSPHATASE INCREASED [None]
  - BLOOD LACTATE DEHYDROGENASE INCREASED [None]
  - FEELING ABNORMAL [None]
  - GAMMA-GLUTAMYLTRANSFERASE INCREASED [None]
  - HEPATIC FUNCTION ABNORMAL [None]
  - JAUNDICE [None]
  - LYMPHOCYTE STIMULATION TEST POSITIVE [None]
  - MALAISE [None]
  - PRURITUS GENERALISED [None]
  - TENOSYNOVITIS [None]
